FAERS Safety Report 4845714-4 (Version None)
Quarter: 2005Q4

REPORT INFORMATION
  Report Type: 
  Country: None (occurrence: None)
  Receive Date: 20051201
  Receipt Date: 20051118
  Transmission Date: 20060501
  Serious: Yes (Disabling, Other)
  Sender: FDA-Public Use
  Company Number: 2005108198

PATIENT
  Age: 53 Year
  Sex: Male
  Weight: 86.1834 kg

DRUGS (9)
  1. VIAGRA [Suspect]
     Indication: ERECTILE DYSFUNCTION
     Dosage: (100 MG, AS NECESSARY), ORAL
     Route: 048
  2. ASPIRIN [Concomitant]
  3. VICODIN [Concomitant]
  4. INSULIN [Concomitant]
  5. PLAVIX [Concomitant]
  6. CLONIDINE [Concomitant]
  7. TRAZODONE HCL [Concomitant]
  8. LOPRESSOR [Concomitant]
  9. WELLBUTRIN [Concomitant]

REACTIONS (23)
  - BENIGN INTRACRANIAL HYPERTENSION [None]
  - BLINDNESS [None]
  - BLOOD GLUCOSE INCREASED [None]
  - CSF PRESSURE INCREASED [None]
  - CYST [None]
  - GLYCOSYLATED HAEMOGLOBIN INCREASED [None]
  - HEADACHE [None]
  - HEART VALVE REPLACEMENT [None]
  - INSOMNIA [None]
  - MACULAR DEGENERATION [None]
  - MASS [None]
  - NUCLEAR MAGNETIC RESONANCE IMAGING ABNORMAL [None]
  - OPTIC ATROPHY [None]
  - OPTIC ISCHAEMIC NEUROPATHY [None]
  - PAPILLOEDEMA [None]
  - RETINAL ARTERY OCCLUSION [None]
  - SCOTOMA [None]
  - SENSATION OF PRESSURE [None]
  - SINUS DISORDER [None]
  - VISION BLURRED [None]
  - VISUAL ACUITY REDUCED [None]
  - VISUAL DISTURBANCE [None]
  - VISUAL FIELD DEFECT [None]
